FAERS Safety Report 7387451-0 (Version None)
Quarter: 2011Q1

REPORT INFORMATION
  Report Type: 
  Country: None (occurrence: None)
  Receive Date: 20110331
  Receipt Date: 20110321
  Transmission Date: 20110831
  Serious: Yes (Hospitalization)
  Sender: FDA-Public Use
  Company Number: US-ELI_LILLY_AND_COMPANY-US201102000387

PATIENT
  Sex: Female
  Weight: 95.238 kg

DRUGS (7)
  1. LASIX [Concomitant]
     Indication: POLYURIA
     Dosage: 40 MG, DAILY (1/D)
     Route: 048
  2. CADUET [Concomitant]
     Indication: HYPERTENSION
     Dosage: UNK, DAILY (1/D)
     Route: 047
  3. BYETTA [Suspect]
     Indication: TYPE 2 DIABETES MELLITUS
     Dosage: 10 UG, 2/D
     Route: 058
  4. METFORMIN HCL [Concomitant]
     Indication: TYPE 2 DIABETES MELLITUS
     Dosage: 1500 MG, DAILY (1/D)
     Route: 048
  5. ASPIRIN [Concomitant]
     Indication: PROPHYLAXIS
     Dosage: 81 MG, DAILY (1/D)
     Route: 048
  6. BYETTA [Suspect]
     Dosage: 5 UG, 2/D
     Route: 058
  7. LABETALOL [Concomitant]
     Indication: HYPERTENSION
     Dosage: 200 MG, 2/D
     Route: 048

REACTIONS (1)
  - UROSEPSIS [None]
